FAERS Safety Report 7103548-4 (Version None)
Quarter: 2010Q4

REPORT INFORMATION
  Report Type: 
  Country: None (occurrence: None)
  Receive Date: 20101108
  Receipt Date: 20101101
  Transmission Date: 20110411
  Serious: Yes (Disabling)
  Sender: FDA-Public Use
  Company Number: OSCN-NO-1009S-0251

PATIENT
  Sex: Female

DRUGS (24)
  1. GADOLINIUM UNSPECIFIED [Suspect]
     Indication: PRODUCT USED FOR UNKNOWN INDICATION
     Dosage: SINGLE DOSE, I.V.
     Route: 042
     Dates: start: 20030205, end: 20030205
  2. RAMIPRIL (RAMACE) [Concomitant]
  3. SANDIMMUNE [Concomitant]
  4. PREDNISOLONE [Concomitant]
  5. CALCIUM CARBONATE [Concomitant]
  6. SODIUM BICARBONATE [Concomitant]
  7. ACETYLSALICYLIC ACID (MAGNYL) [Concomitant]
  8. DIPYRIDAMOLE (PERSANTIN) [Concomitant]
  9. FUROSEMIDE (DIURAL) [Concomitant]
  10. INSULIN HUMAN (ACTRAPID) [Concomitant]
  11. INSULIN INJECTION; ISOPHANE (INSULATARD) [Concomitant]
  12. TRAMADOL HYDROCHLORIDE (NOBLIGAN) [Concomitant]
  13. METOCLOPRAMIDE (PRIMPERAN) [Concomitant]
  14. PROPULSID [Concomitant]
  15. ACETAMINOPHEN [Concomitant]
  16. PIVAMPICILLIN HYDROCHLORIDE (PONDOCILLIN) [Concomitant]
  17. OMEPRAZOLE (LOSEC) [Concomitant]
  18. METOPROLOL SUCCINATE (SELO-ZOK) [Concomitant]
  19. ADALAT [Concomitant]
  20. ALFACALCIDOL (ETALPHA) [Concomitant]
  21. CITALOPRAM HYDROBROMIDE [Concomitant]
  22. FERROUS SULPHATE (FERRUDURETTER) [Concomitant]
  23. EPREX [Concomitant]
  24. SODIUM POLYSTYRENE SULFONATE (RESONIUM) [Concomitant]

REACTIONS (1)
  - NEPHROGENIC SYSTEMIC FIBROSIS [None]
